FAERS Safety Report 13129603 (Version 1)
Quarter: 2017Q1

REPORT INFORMATION
  Report Type: Spontaneous
  Country: US (occurrence: US)
  Receive Date: 20170118
  Receipt Date: 20170118
  Transmission Date: 20170428
  Serious: Yes (Life-Threatening, Other)
  Sender: FDA-Public Use
  Company Number: None

PATIENT
  Age: 57 Year
  Sex: Female
  Weight: 61.29 kg

DRUGS (1)
  1. MIRALAX [Suspect]
     Active Substance: POLYETHYLENE GLYCOL 3350
     Indication: INTESTINAL OBSTRUCTION
     Dosage: 1 CAPFUL INDIVIDUAL DOSES P.O.
     Route: 048
     Dates: start: 201610, end: 201612

REACTIONS (2)
  - Respiratory tract infection [None]
  - Breath sounds abnormal [None]

NARRATIVE: CASE EVENT DATE: 201610
